FAERS Safety Report 8503380-0 (Version None)
Quarter: 2012Q3

REPORT INFORMATION
  Report Type: 
  Country: None (occurrence: None)
  Receive Date: 20120711
  Receipt Date: 20120705
  Transmission Date: 20120928
  Serious: No
  Sender: FDA-Public Use
  Company Number: US-PFIZER INC-2012107833

PATIENT
  Sex: Female

DRUGS (2)
  1. VFEND [Suspect]
     Indication: BRONCHOPULMONARY ASPERGILLOSIS
     Dosage: 200 MG, 2X/DAY
     Dates: start: 20120423
  2. VFEND [Suspect]
     Dosage: UNK

REACTIONS (5)
  - FATIGUE [None]
  - ASTHENIA [None]
  - FUNGAL INFECTION [None]
  - THERAPEUTIC RESPONSE UNEXPECTED [None]
  - HEARING IMPAIRED [None]
